FAERS Safety Report 9244559 (Version 2)
Quarter: 2013Q4

REPORT INFORMATION
  Report Type: Spontaneous
  Country: US (occurrence: None)
  Receive Date: 20121128
  Receipt Date: 20131122
  Transmission Date: 20140711
  Serious: Yes (Other)
  Sender: FDA-Public Use
  Company Number: KAD201209-000449

PATIENT
  Age: 54 Year
  Sex: Male
  Weight: 77.6 kg

DRUGS (12)
  1. INTERFERON ALFACON-1 [Suspect]
     Indication: HEPATITIS C
     Dosage: 15 MCG, ONCE A DAY, SUBCUTANEOUS
     Route: 050
     Dates: start: 20111130
  2. RIBASPHERE RIBAPAK (RIBAVIRIN) [Suspect]
     Indication: HEPATITIS C
     Dosage: 3 TABLETS TWICE DAILY, 1200MG/DAY, ORAL
     Route: 048
     Dates: start: 20111130
  3. MULTIVITAMIN [Concomitant]
  4. BUPROPION [Concomitant]
  5. LISINOPRIL [Concomitant]
  6. ASPIRIN [Concomitant]
  7. LYCOPENE [Concomitant]
  8. VITAMIN E [Concomitant]
  9. FISH OIL [Concomitant]
  10. PRILOSEC [Concomitant]
  11. SYNTHROID [Concomitant]
  12. VIAGRA [Concomitant]

REACTIONS (28)
  - Depression [None]
  - Weight decreased [None]
  - Decreased appetite [None]
  - Mood altered [None]
  - Affect lability [None]
  - Abdominal discomfort [None]
  - Dyspnoea [None]
  - Feeling abnormal [None]
  - Muscular weakness [None]
  - Fatigue [None]
  - Thyroid function test abnormal [None]
  - Blood test abnormal [None]
  - Hepatitis C [None]
  - Drug ineffective [None]
  - Frustration [None]
  - Malaise [None]
  - Injection site pain [None]
  - Blood thyroid stimulating hormone increased [None]
  - Weight fluctuation [None]
  - Insomnia [None]
  - White blood cell count decreased [None]
  - Red blood cell count decreased [None]
  - Haemoglobin decreased [None]
  - Haematocrit decreased [None]
  - Lymphocyte count decreased [None]
  - Neutrophil count decreased [None]
  - Blood triglycerides increased [None]
  - High density lipoprotein decreased [None]
